FAERS Safety Report 18448599 (Version 1)
Quarter: 2020Q4

REPORT INFORMATION
  Report Type: Spontaneous
  Country: FR (occurrence: FR)
  Receive Date: 20201031
  Receipt Date: 20201031
  Transmission Date: 20210114
  Serious: Yes (Other)
  Sender: FDA-Public Use
  Company Number: FR-TEVA-2020-FR-1842823

PATIENT
  Age: 60 Year
  Sex: Male
  Weight: 67.5 kg

DRUGS (10)
  1. INEGY 10 MG/20 MG, COMPRIME [Concomitant]
     Active Substance: EZETIMIBE\SIMVASTATIN
  2. FUMAFER [Concomitant]
     Active Substance: FERROUS FUMARATE
  3. TEMERIT [Concomitant]
     Active Substance: NEBIVOLOL
  4. SPECIAFOLDINE [Concomitant]
     Active Substance: FOLIC ACID
  5. VOSEVI [Suspect]
     Active Substance: SOFOSBUVIR\VELPATASVIR\VOXILAPREVIR
     Indication: CHRONIC HEPATITIS C
     Dosage: 1 DF
     Route: 048
     Dates: start: 20190617, end: 201909
  6. RENVELA [Concomitant]
     Active Substance: SEVELAMER CARBONATE
  7. ALDACTONE [Concomitant]
     Active Substance: SPIRONOLACTONE
  8. KAYEXALATE [Concomitant]
     Active Substance: SODIUM POLYSTYRENE SULFONATE
  9. LASILIX SPECIAL 500 MG, COMPRIME SECABLE [Concomitant]
     Active Substance: FUROSEMIDE
  10. RIBAVIRINE [Suspect]
     Active Substance: RIBAVIRIN
     Indication: CHRONIC HEPATITIS C
     Dosage: 400 MG
     Route: 048
     Dates: start: 20190617, end: 201909

REACTIONS (2)
  - Hepatitis C [Not Recovered/Not Resolved]
  - Drug ineffective [Not Recovered/Not Resolved]

NARRATIVE: CASE EVENT DATE: 20191213
